FAERS Safety Report 8241513-4 (Version None)
Quarter: 2012Q1

REPORT INFORMATION
  Report Type: 
  Country: None (occurrence: None)
  Receive Date: 20120328
  Receipt Date: 20110815
  Transmission Date: 20120608
  Serious: No
  Sender: FDA-Public Use
  Company Number: US-COVIDIEN/TYCO HEALTHCARE/MALLINCKRODT-T201101591

PATIENT
  Sex: Male
  Weight: 54.422 kg

DRUGS (4)
  1. METHADONE HCL [Suspect]
     Dosage: 10 MG, BID
     Route: 048
     Dates: start: 20110501, end: 20110601
  2. METHADONE HCL [Suspect]
     Indication: PAIN
     Dosage: 10 MG, TID
     Route: 048
     Dates: start: 20110601, end: 20110814
  3. DIAZEPAM [Concomitant]
     Indication: MUSCLE TWITCHING
     Dosage: 10 MG, TID
     Route: 048
  4. METHADONE HCL [Suspect]
     Dosage: UNK
     Dates: start: 20110201, end: 20110501

REACTIONS (6)
  - DYSGEUSIA [None]
  - DRUG INEFFECTIVE [None]
  - INCORRECT DOSE ADMINISTERED [None]
  - NAUSEA [None]
  - MALAISE [None]
  - INAPPROPRIATE SCHEDULE OF DRUG ADMINISTRATION [None]
